FAERS Safety Report 18925436 (Version 2)
Quarter: 2021Q3

REPORT INFORMATION
  Report Type: Report from Study
  Country: US (occurrence: US)
  Receive Date: 20210222
  Receipt Date: 20210728
  Transmission Date: 20211014
  Serious: Yes (Hospitalization)
  Sender: FDA-Public Use
  Company Number: US-JNJFOC-20201230897

PATIENT
  Age: 45 Year
  Sex: Male
  Weight: 122.58 kg

DRUGS (2)
  1. LASIX [Concomitant]
     Active Substance: FUROSEMIDE
  2. PLACEBO [Suspect]
     Active Substance: UNSPECIFIED INGREDIENT
     Indication: CARDIAC FAILURE
     Dosage: MEDICATION KIT NUMBER 18612
     Route: 048
     Dates: start: 20201212

REACTIONS (3)
  - Choking [Recovering/Resolving]
  - Micturition frequency decreased [Not Recovered/Not Resolved]
  - Oesophageal stenosis [Recovering/Resolving]

NARRATIVE: CASE EVENT DATE: 20201213
